FAERS Safety Report 9264403 (Version 7)
Quarter: 2013Q3

REPORT INFORMATION
  Report Type: Spontaneous
  Country: JP (occurrence: JP)
  Receive Date: 20130430
  Receipt Date: 20130902
  Transmission Date: 20140515
  Serious: Yes (Other)
  Sender: FDA-Public Use
  Company Number: JP-B.I. PHARMACEUTICALS,INC./RIDGEFIELD-2013-BI-11825NB

PATIENT
  Age: 66 Year
  Sex: Male
  Weight: 64 kg

DRUGS (4)
  1. PRADAXA [Suspect]
     Indication: CORONARY ARTERY ANEURYSM
     Dosage: 220 MG
     Route: 048
     Dates: start: 20130407, end: 20130426
  2. MAINTATE/BISOPROLOL FUMARATE [Concomitant]
     Indication: MYOCARDIAL INFARCTION
     Dosage: 1.25 MG
     Route: 048
     Dates: start: 20080520
  3. LOCHOL/FLUVASTATIN SODIUM [Concomitant]
     Indication: DYSLIPIDAEMIA
     Dosage: 20 MG
     Route: 048
     Dates: start: 20091113
  4. PRELAZINE/CILOSTAZOL [Concomitant]
     Indication: MYOCARDIAL INFARCTION
     Dosage: 50 MG
     Route: 048
     Dates: start: 20120629

REACTIONS (2)
  - Stomatitis necrotising [Recovered/Resolved]
  - Off label use [Unknown]
